FAERS Safety Report 9135894 (Version 1)
Quarter: 2013Q1

REPORT INFORMATION
  Report Type: Spontaneous
  Country: US (occurrence: US)
  Receive Date: 20130219
  Receipt Date: 20130219
  Transmission Date: 20140127
  Serious: Yes (Other)
  Sender: FDA-Public Use
  Company Number: US-BRISTOL-MYERS SQUIBB COMPANY-17126269

PATIENT
  Age: 51 Year
  Sex: Female

DRUGS (11)
  1. ABATACEPT SUBQ INJECTION 125MG/ML [Suspect]
     Indication: RHEUMATOID ARTHRITIS
     Route: 058
     Dates: start: 201203
  2. BACLOFAN [Concomitant]
  3. FOLIC ACID [Concomitant]
  4. IRON [Concomitant]
  5. LORAZEPAM [Concomitant]
  6. LORTAB [Concomitant]
  7. METHOTREXATE [Concomitant]
  8. PLAQUENIL [Concomitant]
  9. VITAMIN D [Concomitant]
  10. SYNTHROID [Concomitant]
  11. ZOLOFT [Concomitant]

REACTIONS (2)
  - Rectal cancer [Unknown]
  - Local swelling [Unknown]
